FAERS Safety Report 16365181 (Version 1)
Quarter: 2019Q2

REPORT INFORMATION
  Report Type: Spontaneous
  Country: US (occurrence: US)
  Receive Date: 20190529
  Receipt Date: 20190529
  Transmission Date: 20190711
  Serious: No
  Sender: FDA-Public Use
  Company Number: US-009507513-1905USA008486

PATIENT
  Sex: Male

DRUGS (1)
  1. SINEMET CR [Suspect]
     Active Substance: CARBIDOPA\LEVODOPA
     Indication: RESTLESS LEGS SYNDROME
     Dosage: 1 TABLET , QD
     Route: 048
     Dates: end: 20190509

REACTIONS (2)
  - Restless legs syndrome [Recovered/Resolved]
  - Wrong technique in product usage process [Unknown]
